FAERS Safety Report 7427356-X (Version None)
Quarter: 2011Q2

REPORT INFORMATION
  Report Type: 
  Country: None (occurrence: None)
  Receive Date: 20110420
  Receipt Date: 20110414
  Transmission Date: 20111010
  Serious: Yes (Hospitalization)
  Sender: FDA-Public Use
  Company Number: TR-ELI_LILLY_AND_COMPANY-TR201104004466

PATIENT
  Age: 52 Year
  Sex: Female

DRUGS (15)
  1. INSULIN DETEMIR [Concomitant]
     Dosage: 36 U, EACH EVENING
  2. METFORMIN [Concomitant]
  3. VITAMIN B-12 [Concomitant]
  4. ESOMEPRAZOLE [Concomitant]
  5. BISOPROLOL FUMARATE [Concomitant]
  6. CLOPIDOGREL [Concomitant]
  7. RAMIPRIL [Concomitant]
  8. SITAGLIPTIN [Concomitant]
  9. CANDESARTAN [Concomitant]
  10. BYETTA [Suspect]
     Indication: DIABETES MELLITUS
     Dosage: 5 UG, BID
     Route: 058
     Dates: start: 20110404
  11. FUROSEMIDE [Concomitant]
  12. PROZAC [Concomitant]
  13. LEVOTHYROXINE SODIUM [Concomitant]
  14. ACETYLSALICYLIC ACID SRT [Concomitant]
  15. ROSUVASTATIN [Concomitant]

REACTIONS (3)
  - PALPITATIONS [None]
  - NAUSEA [None]
  - ABDOMINAL PAIN [None]
